FAERS Safety Report 19466686 (Version 3)
Quarter: 2021Q3

REPORT INFORMATION
  Report Type: Spontaneous
  Country: US (occurrence: US)
  Receive Date: 20210628
  Receipt Date: 20210723
  Transmission Date: 20211014
  Serious: Yes (Other)
  Sender: FDA-Public Use
  Company Number: US-JNJFOC-20210655065

PATIENT
  Sex: Male

DRUGS (7)
  1. XARELTO [Suspect]
     Active Substance: RIVAROXABAN
     Dosage: AT DINNER
     Route: 048
     Dates: start: 20210524
  2. ASPRIN [Concomitant]
     Active Substance: ASPIRIN
  3. ATORVASTATIN [Concomitant]
     Active Substance: ATORVASTATIN
  4. CARVEDIOL [Concomitant]
     Active Substance: CARVEDILOL
  5. XARELTO [Suspect]
     Active Substance: RIVAROXABAN
     Indication: PULMONARY THROMBOSIS
     Dosage: TAKE 1 TABLET BY MOUTH TWICE A DAY WITH FOOD FOR 41 DOSES
     Route: 048
  6. ENALAPRIL [Concomitant]
     Active Substance: ENALAPRIL
  7. HYDROCHLOROTHIAZIDE. [Concomitant]
     Active Substance: HYDROCHLOROTHIAZIDE

REACTIONS (2)
  - Haemorrhage [Unknown]
  - Haematuria [Recovered/Resolved]
